FAERS Safety Report 4704094-5 (Version None)
Quarter: 2005Q2

REPORT INFORMATION
  Report Type: 
  Country: None (occurrence: None)
  Receive Date: 20050630
  Receipt Date: 20050621
  Transmission Date: 20051028
  Serious: Yes (Other)
  Sender: FDA-Public Use
  Company Number: PHEH2005US06971

PATIENT
  Age: 65 Year
  Sex: Female

DRUGS (2)
  1. ZOLEDRONATE [Suspect]
     Indication: MULTIPLE MYELOMA
     Dosage: 4 MG, QMO
  2. DEXAMETHASONE [Suspect]

REACTIONS (14)
  - ASEPTIC NECROSIS BONE [None]
  - BONE DEBRIDEMENT [None]
  - BONE DISORDER [None]
  - BONE EROSION [None]
  - BONE SCAN ABNORMAL [None]
  - IMPAIRED HEALING [None]
  - INCISIONAL DRAINAGE [None]
  - MOUTH ULCERATION [None]
  - ORAL PAIN [None]
  - OSTEITIS [None]
  - OSTEOSCLEROSIS [None]
  - PAIN [None]
  - SWELLING [None]
  - TOOTH EXTRACTION [None]
